FAERS Safety Report 8798813 (Version 4)
Quarter: 2013Q4

REPORT INFORMATION
  Report Type: Report from Study
  Country: JP (occurrence: JP)
  Receive Date: 20120920
  Receipt Date: 20131108
  Transmission Date: 20140711
  Serious: Yes (Hospitalization, Other)
  Sender: FDA-Public Use
  Company Number: JP-VERTEX PHARMACEUTICAL INC.-AE-2012-006220

PATIENT
  Age: 67 Year
  Sex: Female

DRUGS (14)
  1. VX-950 (TELAPREVIR) [Suspect]
     Indication: CHRONIC HEPATITIS C
     Dosage: 2250 MG, QD
     Route: 048
     Dates: start: 20120308, end: 20120403
  2. VX-950 (TELAPREVIR) [Suspect]
     Dosage: 1500 MG, QD
     Route: 048
     Dates: start: 20120404, end: 20120424
  3. VX-950 (TELAPREVIR) [Suspect]
     Dosage: 1000 MG, QD
     Route: 048
     Dates: start: 20120425, end: 20120509
  4. REBETOL [Suspect]
     Indication: CHRONIC HEPATITIS C
     Dosage: 800 MG, QD
     Route: 048
     Dates: start: 20120308, end: 20120327
  5. REBETOL [Suspect]
     Dosage: 600 MG, QD
     Route: 048
     Dates: start: 20120328, end: 20120403
  6. REBETOL [Suspect]
     Dosage: 400 MG, QD
     Route: 048
     Dates: start: 20120404, end: 20120410
  7. REBETOL [Suspect]
     Dosage: 200 MG, QD
     Route: 048
     Dates: start: 20120411, end: 20120521
  8. PEGINTERFERON ALFA-2B [Suspect]
     Indication: CHRONIC HEPATITIS C
     Dosage: 1.5 ?G/KG, QW
     Route: 058
     Dates: start: 20120308, end: 20120501
  9. PEGINTERFERON ALFA-2B [Suspect]
     Dosage: 0.9 ?G/KG, QW
     Route: 058
     Dates: start: 20120502, end: 20120507
  10. MAGMITT [Concomitant]
     Dosage: 1500 MG, QD
     Route: 048
     Dates: start: 20120315
  11. GASTROM [Concomitant]
     Dosage: 3 G, QD
     Route: 048
     Dates: start: 20120321, end: 20120724
  12. ZYLORIC [Concomitant]
     Dosage: 100 MG, QD
     Route: 048
     Dates: start: 20120404, end: 20120515
  13. MAIBASTAN [Concomitant]
     Dosage: 10 MG, QD
     Route: 048
     Dates: end: 20120407
  14. VOLTAREN [Concomitant]
     Dosage: 25 MG, QD, PRN
     Route: 048
     Dates: start: 20120308, end: 20120516

REACTIONS (3)
  - Pyelonephritis [Recovered/Resolved]
  - Loss of consciousness [Recovered/Resolved]
  - Anaemia [Recovered/Resolved]
